FAERS Safety Report 7549195-1 (Version None)
Quarter: 2011Q2

REPORT INFORMATION
  Report Type: 
  Country: None (occurrence: None)
  Receive Date: 20110615
  Receipt Date: 20110607
  Transmission Date: 20111010
  Serious: Yes (Hospitalization)
  Sender: FDA-Public Use
  Company Number: PHHY2011US49941

PATIENT
  Sex: Female
  Weight: 16.78 kg

DRUGS (13)
  1. ATROVENT [Concomitant]
  2. AQUAPHOR [Concomitant]
  3. TOBI [Suspect]
     Dosage: 300 MG, BID
     Dates: start: 20110525
  4. HYDROXYZINE [Concomitant]
  5. OMEPRAZOLE [Concomitant]
  6. MIRALAX [Concomitant]
  7. AZITHROMYCIN [Concomitant]
  8. LEVOTHYROXINE SODIUM [Concomitant]
  9. NYSTATIN [Concomitant]
  10. RANITIDINE [Concomitant]
  11. FLOVENT [Concomitant]
  12. MIDODRINE HYDROCHLORIDE [Concomitant]
  13. AMOXICILLIN [Concomitant]

REACTIONS (1)
  - GENERAL PHYSICAL HEALTH DETERIORATION [None]
